FAERS Safety Report 6912641-8 (Version None)
Quarter: 2010Q3

REPORT INFORMATION
  Report Type: 
  Country: None (occurrence: None)
  Receive Date: 20100806
  Receipt Date: 20080915
  Transmission Date: 20110219
  Serious: Yes (Other)
  Sender: FDA-Public Use
  Company Number: US-PFIZER INC-2008077943

PATIENT
  Sex: Male

DRUGS (3)
  1. DETROL [Suspect]
     Indication: HYPERTONIC BLADDER
  2. VESICARE [Suspect]
     Indication: HYPERTONIC BLADDER
  3. TROSPIUM [Suspect]
     Indication: HYPERTONIC BLADDER

REACTIONS (1)
  - URINARY RETENTION [None]
